FAERS Safety Report 11089861 (Version 1)
Quarter: 2015Q2

REPORT INFORMATION
  Report Type: Spontaneous
  Country: US (occurrence: US)
  Receive Date: 20150505
  Receipt Date: 20150505
  Transmission Date: 20150821
  Serious: Yes (Hospitalization, Other)
  Sender: FDA-Public Use
  Company Number: US-ELI_LILLY_AND_COMPANY-US201504008637

PATIENT
  Age: 30 Year
  Sex: Female

DRUGS (10)
  1. HUMALOG [Concomitant]
     Active Substance: INSULIN LISPRO
     Indication: TYPE 2 DIABETES MELLITUS
     Dosage: 5 U, EACH MORNING
  2. HUMULIN N [Concomitant]
     Active Substance: INSULIN HUMAN
     Dosage: 7 U, EACH EVENING
  3. PEPCID [Concomitant]
     Active Substance: FAMOTIDINE
  4. HUMULIN N [Concomitant]
     Active Substance: INSULIN HUMAN
     Dosage: 4 U, EACH EVENING
  5. PROZAC [Suspect]
     Active Substance: FLUOXETINE HYDROCHLORIDE
     Indication: DEPRESSION
     Dosage: 20 MG, QD
     Route: 048
     Dates: start: 20041208
  6. LEXAPRO [Concomitant]
     Active Substance: ESCITALOPRAM OXALATE
     Indication: DEPRESSION
     Dosage: UNK
     Dates: end: 2004
  7. HUMULIN N [Concomitant]
     Active Substance: INSULIN HUMAN
     Indication: TYPE 2 DIABETES MELLITUS
     Dosage: 5 U, EACH MORNING
  8. HUMALOG [Concomitant]
     Active Substance: INSULIN LISPRO
     Dosage: 8 U, EACH MORNING
  9. HUMALOG [Concomitant]
     Active Substance: INSULIN LISPRO
     Dosage: 4 U, EACH EVENING
  10. PRENATAL                           /00231801/ [Concomitant]

REACTIONS (2)
  - Foetal exposure during pregnancy [Recovered/Resolved]
  - Pre-eclampsia [Recovered/Resolved]

NARRATIVE: CASE EVENT DATE: 20050228
